FAERS Safety Report 21708796 (Version 2)
Quarter: 2022Q4

REPORT INFORMATION
  Report Type: Spontaneous
  Country: US (occurrence: US)
  Receive Date: 20221210
  Receipt Date: 20221219
  Transmission Date: 20230113
  Serious: Yes (Other)
  Sender: FDA-Public Use
  Company Number: US-002147023-NVSC2022US283842

PATIENT
  Sex: Male

DRUGS (1)
  1. EXELON PATCH [Suspect]
     Active Substance: RIVASTIGMINE
     Indication: Product used for unknown indication
     Dosage: 9.5 MG, QD 10 (CM2)
     Route: 062

REACTIONS (2)
  - Dementia [Unknown]
  - Application site erythema [Unknown]

NARRATIVE: CASE EVENT DATE: 20221204
